FAERS Safety Report 8074624-7 (Version None)
Quarter: 2012Q1

REPORT INFORMATION
  Report Type: 
  Country: None (occurrence: None)
  Receive Date: 20120120
  Receipt Date: 20120103
  Transmission Date: 20120608
  Serious: Yes (Death)
  Sender: FDA-Public Use
  Company Number: B0773363A

PATIENT
  Age: 52 Year
  Sex: Female

DRUGS (9)
  1. PROPRANOLOL HYDROCHLORIDE [Suspect]
     Indication: PRODUCT USED FOR UNKNOWN INDICATION
     Dosage: UNK / UNK / ORAL
     Route: 048
  2. CYCLOBENZAPRINE HCL [Suspect]
     Indication: PRODUCT USED FOR UNKNOWN INDICATION
     Dosage: UNK / UNK / ORAL
     Route: 048
  3. METOCLOPRAMIDE [Suspect]
     Indication: PRODUCT USED FOR UNKNOWN INDICATION
     Dosage: UNK / UNK / ORAL
     Route: 048
  4. GABAPENTIN [Suspect]
     Indication: PRODUCT USED FOR UNKNOWN INDICATION
     Dosage: UNK / UNK / ORAL
     Route: 048
  5. ETHANOL (FORMULATION UNKNOWN) (ALCOHOL) [Suspect]
     Indication: PRODUCT USED FOR UNKNOWN INDICATION
     Dosage: UNK /UNK / ORAL
     Route: 048
  6. GEMFIBROZIL (FORMULATION UNKNOWN) (GENERIC) (GEMFIBROZIL) [Suspect]
     Indication: PRODUCT USED FOR UNKNOWN INDICATION
     Dosage: UNK / UNK / ORAL
     Route: 048
  7. AMPHETAMINE SULFATE TAB [Suspect]
     Indication: PRODUCT USED FOR UNKNOWN INDICATION
     Dosage: UNK / UNK / ORAL
     Route: 048
  8. AMITRIPTYLINE (FORMULATION UNKNOWN) (AMITRIPTYLINE) [Suspect]
     Indication: PRODUCT USED FOR UNKNOWN INDICATION
     Dosage: UNK / UNK / ORAL
     Route: 048
  9. MORPHINE [Suspect]
     Indication: PRODUCT USED FOR UNKNOWN INDICATION
     Dosage: UNK / UNK / ORAL
     Route: 048

REACTIONS (2)
  - COMPLETED SUICIDE [None]
  - CARDIO-RESPIRATORY ARREST [None]
